FAERS Safety Report 14160071 (Version 1)
Quarter: 2017Q4

REPORT INFORMATION
  Report Type: Spontaneous
  Country: NO (occurrence: NO)
  Receive Date: 20171106
  Receipt Date: 20171106
  Transmission Date: 20180321
  Serious: Yes (Other)
  Sender: FDA-Public Use
  Company Number: NO-ACCORD-060593

PATIENT
  Age: 31 Year
  Sex: Female

DRUGS (4)
  1. ETOPOSIDE. [Suspect]
     Active Substance: ETOPOSIDE
     Indication: ANGIOCENTRIC LYMPHOMA
  2. MELPHALAN. [Suspect]
     Active Substance: MELPHALAN
     Indication: ANGIOCENTRIC LYMPHOMA
     Dosage: HIGH-DOSE THERAPY
  3. CYTARABINE/CYTARABINE HYDROCHLORIDE/CYTARABINE OCFOSFATE [Suspect]
     Active Substance: CYTARABINE
     Indication: ANGIOCENTRIC LYMPHOMA
     Dosage: HIGH-DOSE THERAPY
  4. CARMUSTINE [Suspect]
     Active Substance: CARMUSTINE
     Indication: ANGIOCENTRIC LYMPHOMA
     Dosage: HIGH-DOSE THERAPY

REACTIONS (2)
  - Appendicitis [Unknown]
  - Off label use [Unknown]
